FAERS Safety Report 7617042-5 (Version None)
Quarter: 2011Q3

REPORT INFORMATION
  Report Type: 
  Country: None (occurrence: None)
  Receive Date: 20110718
  Receipt Date: 20090928
  Transmission Date: 20111222
  Serious: Yes (Hospitalization, Other)
  Sender: FDA-Public Use
  Company Number: US-BAYER-2011-009481

PATIENT
  Age: 70 Year
  Sex: Male
  Weight: 120 kg

DRUGS (16)
  1. TRASYLOL [Suspect]
     Indication: COX-MAZE PROCEDURE
     Dosage: 200 ML, LOADING DOSE
     Route: 042
     Dates: start: 20060717, end: 20060717
  2. AMIODARONE HCL [Concomitant]
     Dosage: 400 MG, UNK
     Route: 048
     Dates: start: 20060101
  3. ALTACE [Concomitant]
     Indication: HYPERTENSION
     Dosage: 10 MG, UNK
     Route: 048
     Dates: start: 20060701
  4. DIGOXIN [Concomitant]
     Dosage: UNK
     Route: 048
     Dates: start: 20060101
  5. CLINDAMYCIN [Concomitant]
     Dosage: 900 MG, UNK
     Route: 042
     Dates: start: 20060717, end: 20060717
  6. TRASYLOL [Suspect]
     Dosage: 50 ML/HR, INFUSION
     Route: 042
     Dates: start: 20060717, end: 20060717
  7. HEPARIN [Concomitant]
     Dosage: 30000 U, UNK
     Route: 042
     Dates: start: 20060717, end: 20060717
  8. LASIX [Concomitant]
     Indication: DIURETIC THERAPY
     Dosage: 40 MG, ONCE
     Route: 048
     Dates: start: 20060701
  9. LOPRESSOR SR [Concomitant]
     Dosage: 200 MG, UNK
     Route: 048
     Dates: start: 20060701
  10. CONTRAST MEDIA [Concomitant]
     Indication: CATHETERISATION CARDIAC
     Dosage: UNK
     Route: 042
     Dates: start: 20060716
  11. TRASYLOL [Suspect]
     Indication: CORONARY ARTERY BYPASS
     Dosage: 1 ML, ONCE, TEST DOSE
     Route: 042
     Dates: start: 20060717, end: 20060717
  12. LANOXIN [Concomitant]
     Indication: ARRHYTHMIA
     Dosage: 0.25 MG, ONCE
     Route: 048
     Dates: start: 20060701
  13. IMDUR [Concomitant]
     Dosage: 60 MG, UNK
     Route: 048
     Dates: start: 20060701
  14. VYTORIN [Concomitant]
     Dosage: 10/20 MG DAILY
     Route: 048
     Dates: start: 20060101
  15. ALDACTONE [Concomitant]
     Dosage: 25 MG, UNK
     Route: 048
     Dates: start: 20060701
  16. VANCOMYCIN [Concomitant]
     Dosage: 2 G, UNK
     Route: 061
     Dates: start: 20060717, end: 20060717

REACTIONS (12)
  - ANXIETY [None]
  - RENAL FAILURE [None]
  - PAIN [None]
  - UNEVALUABLE EVENT [None]
  - RENAL IMPAIRMENT [None]
  - RENAL INJURY [None]
  - CARDIOGENIC SHOCK [None]
  - ANHEDONIA [None]
  - INJURY [None]
  - STRESS [None]
  - EMOTIONAL DISTRESS [None]
  - FEAR [None]
